FAERS Safety Report 26062468 (Version 1)
Quarter: 2025Q4

REPORT INFORMATION
  Report Type: Spontaneous
  Country: US (occurrence: US)
  Receive Date: 20251119
  Receipt Date: 20251119
  Transmission Date: 20260117
  Serious: No
  Sender: AMGEN
  Company Number: US-AMGEN-USASP2025225080

PATIENT
  Age: 69 Year
  Sex: Female

DRUGS (2)
  1. KANJINTI [Suspect]
     Active Substance: TRASTUZUMAB-ANNS
     Indication: Breast cancer
     Dosage: 588 MILLIGRAM (STRENGTH: 420 MG, FREQUENCY: CYCLE 4)
     Route: 040
     Dates: start: 20250909
  2. KANJINTI [Suspect]
     Active Substance: TRASTUZUMAB-ANNS
     Dosage: 588 MILLIGRAM (STRENGTH: 420 MG, FREQUENCY: CYCLE 4)
     Route: 040

REACTIONS (1)
  - Dyspnoea [Unknown]

NARRATIVE: CASE EVENT DATE: 20251112
